FAERS Safety Report 9386333 (Version 5)
Quarter: 2014Q1

REPORT INFORMATION
  Report Type: Report from Study
  Country: CA (occurrence: CA)
  Receive Date: 20130708
  Receipt Date: 20140306
  Transmission Date: 20141002
  Serious: Yes (Other)
  Sender: FDA-Public Use
  Company Number: CA-ROCHE-1245657

PATIENT
  Age: 60 Year
  Sex: Female
  Weight: 89.4 kg

DRUGS (10)
  1. RITUXAN [Suspect]
     Indication: RHEUMATOID ARTHRITIS
     Dosage: FREQUENCY : DAY 1, DAY 15.
     Route: 042
     Dates: start: 20101115
  2. EFFEXOR [Suspect]
     Indication: PRODUCT USED FOR UNKNOWN INDICATION
     Route: 065
  3. FOLIC ACID [Concomitant]
  4. METHOTREXATE [Concomitant]
  5. NEXIUM [Concomitant]
  6. ACTONEL [Concomitant]
  7. VAGIFEM [Concomitant]
  8. DIPHENHYDRAMINE HCL [Concomitant]
     Route: 048
     Dates: start: 20130808
  9. ACETAMINOPHEN [Concomitant]
     Route: 048
     Dates: start: 20130808
  10. METHYLPREDNISOLONE [Concomitant]
     Route: 042

REACTIONS (6)
  - Depression [Not Recovered/Not Resolved]
  - Hyperhidrosis [Not Recovered/Not Resolved]
  - Blood pressure diastolic decreased [Unknown]
  - Arthralgia [Unknown]
  - Blood pressure increased [Unknown]
  - Drug ineffective [Unknown]
